FAERS Safety Report 5953493-2 (Version None)
Quarter: 2008Q4

REPORT INFORMATION
  Report Type: 
  Country: None (occurrence: None)
  Receive Date: 20081114
  Receipt Date: 20081106
  Transmission Date: 20090506
  Serious: Yes (Death)
  Sender: FDA-Public Use
  Company Number: GB-ROCHE-595727

PATIENT
  Sex: Female
  Weight: 66 kg

DRUGS (3)
  1. CAPECITABINE [Suspect]
     Indication: BREAST CANCER
     Dosage: RECEIVED TOTAL 1 CYCLE. ROUTE AND DOSAGE FORM AS PER PROTOCOL.
     Route: 048
     Dates: start: 20080820, end: 20081015
  2. EPIRUBICIN [Suspect]
     Indication: BREAST CANCER
     Dosage: RECEIVED TOTAL 4 CYCLES. ROUTE AND DOSAGE FORM AS PER PROTOCOL.
     Route: 042
     Dates: start: 20080820, end: 20081015
  3. NEULASTA [Suspect]
     Indication: BREAST CANCER
     Dosage: RECEIVED TOTAL 4 CYCLES. ROUTE AND DOSAGE FORM AS PER PROTOCOL.
     Route: 042
     Dates: start: 20080820, end: 20081015

REACTIONS (1)
  - CEREBROVASCULAR ACCIDENT [None]
